FAERS Safety Report 4648116-9 (Version None)
Quarter: 2005Q2

REPORT INFORMATION
  Report Type: 
  Country: None (occurrence: None)
  Receive Date: 20050331
  Receipt Date: 20041210
  Transmission Date: 20051028
  Serious: No
  Sender: FDA-Public Use
  Company Number: 04P-163-0282937-00

PATIENT
  Age: 75 Year
  Sex: Female
  Weight: 89.8122 kg

DRUGS (17)
  1. HUMIRA [Suspect]
     Indication: RHEUMATOID ARTHRITIS
     Dosage: 40 MG, 1 IN 2 WK, SUBCUTANEOUS
     Route: 058
     Dates: start: 20040701, end: 20041101
  2. POTASSIUM CHLORIDE [Concomitant]
  3. FOLIC ACID [Concomitant]
  4. CYANOCOBALAMIN [Concomitant]
  5. OCCUVITE (HYPROMELLOSE) [Concomitant]
  6. MAGNESIUM [Concomitant]
  7. ASCORBIC ACID [Concomitant]
  8. FISH OIL [Concomitant]
  9. DIAZEPAM [Concomitant]
  10. TAMOXIFEN CITRATE [Concomitant]
  11. AMLODIPINE BESYLATE [Concomitant]
  12. HYZAAR [Concomitant]
  13. PROPRANOLOL HYDROCHLORIDE [Concomitant]
  14. FLUOXETINE HCL [Concomitant]
  15. MULTI-VITAMINS [Concomitant]
  16. CO Q10 [Concomitant]
  17. CALCIUM GLUCONATE [Concomitant]

REACTIONS (3)
  - DRUG INEFFECTIVE [None]
  - DYSPNOEA EXACERBATED [None]
  - FATIGUE [None]
